FAERS Safety Report 8850629 (Version 1)
Quarter: 2012Q4

REPORT INFORMATION
  Report Type: 
  Country: US (occurrence: US)
  Receive Date: 20121019
  Receipt Date: 20121019
  Transmission Date: 20130627
  Serious: Yes (Hospitalization)
  Sender: FDA-Public Use
  Company Number: US-ASTRAZENECA-2012SE77825

PATIENT
  Age: 26 Year
  Sex: Female
  Weight: 45.4 kg

DRUGS (9)
  1. SEROQUEL [Suspect]
     Indication: BIPOLAR DISORDER
     Dosage: DAILY
     Route: 048
     Dates: start: 2007
  2. SEROQUEL [Suspect]
     Indication: BIPOLAR DISORDER
     Route: 048
     Dates: end: 201208
  3. SEROQUEL [Suspect]
     Indication: BIPOLAR DISORDER
     Route: 048
     Dates: start: 201208
  4. LAMICTAL [Concomitant]
     Indication: BIPOLAR DISORDER
     Route: 048
     Dates: start: 2008, end: 201208
  5. ABILIFY [Concomitant]
     Indication: BIPOLAR DISORDER
     Route: 048
     Dates: start: 2007
  6. ABILIFY [Concomitant]
     Indication: BIPOLAR DISORDER
     Route: 048
     Dates: end: 201208
  7. PROVIGIL [Concomitant]
     Indication: COGNITIVE DISORDER
     Route: 048
     Dates: start: 2007
  8. YAZ [Concomitant]
     Indication: CONTRACEPTION
     Route: 048
     Dates: start: 2007
  9. RITALIN [Concomitant]
     Indication: ATTENTION DEFICIT/HYPERACTIVITY DISORDER

REACTIONS (6)
  - Psychotic disorder [Recovered/Resolved]
  - Borderline personality disorder [Unknown]
  - Disturbance in attention [Unknown]
  - Muscle spasms [Unknown]
  - Vomiting [Unknown]
  - Intentional drug misuse [Unknown]
